FAERS Safety Report 7749775-4 (Version None)
Quarter: 2011Q3

REPORT INFORMATION
  Report Type: 
  Country: None (occurrence: None)
  Receive Date: 20110914
  Receipt Date: 20110905
  Transmission Date: 20111222
  Serious: Yes (Death, Hospitalization)
  Sender: FDA-Public Use
  Company Number: JP-BRISTOL-MYERS SQUIBB COMPANY-15962913

PATIENT
  Age: 74 Year
  Sex: Male
  Weight: 48 kg

DRUGS (15)
  1. CISPLATIN [Suspect]
     Indication: GASTRIC CANCER
     Dosage: 1 DF: 88*3MG
     Route: 041
     Dates: start: 20110727, end: 20110727
  2. ZOLPIDEM [Suspect]
     Dosage: 15MG;28JUL11,10MG;29JUL11
     Dates: start: 20110728, end: 20110729
  3. LOXOPROFEN [Concomitant]
     Indication: ANALGESIC THERAPY
     Dates: end: 20110807
  4. ROHYPNOL [Suspect]
     Dosage: 1 DF: 1 TAB AND ADDITIONAL HALF TAB;30JUL;01AUG11,31JUL11;02AUG;03AUG;1TAB
     Dates: start: 20110730, end: 20110803
  5. TS-1 [Suspect]
     Indication: GASTRIC CANCER
     Route: 048
     Dates: start: 20110725, end: 20110807
  6. FERROUS SULFATE TAB [Concomitant]
     Indication: ANAEMIA PROPHYLAXIS
     Route: 048
     Dates: start: 20110727, end: 20110807
  7. HERCEPTIN [Suspect]
     Indication: HEPATIC CANCER METASTATIC
     Dosage: 1 DF : 388*3MG
     Route: 042
     Dates: start: 20110725, end: 20110725
  8. BROTIZOLAM [Suspect]
     Dosage: LENDEM D,1 DF : 1 TAB
     Dates: start: 20110729
  9. DIAZEPAM [Suspect]
     Dosage: 1 DF : 1 TAB;02AUG;03AUG11
     Dates: start: 20110731, end: 20110803
  10. CISPLATIN [Suspect]
     Indication: HEPATIC CANCER METASTATIC
     Dosage: 1 DF: 88*3MG
     Route: 041
     Dates: start: 20110727, end: 20110727
  11. TS-1 [Suspect]
     Indication: HEPATIC CANCER METASTATIC
     Route: 048
     Dates: start: 20110725, end: 20110807
  12. GRANISETRON [Concomitant]
     Route: 042
     Dates: start: 20110727, end: 20110729
  13. LASIX [Concomitant]
     Indication: POLYURIA
     Route: 042
     Dates: start: 20110729, end: 20110802
  14. HERCEPTIN [Suspect]
     Indication: GASTRIC CANCER
     Dosage: 1 DF : 388*3MG
     Route: 042
     Dates: start: 20110725, end: 20110725
  15. DEXAMETHASONE SODIUM PHOSPHATE [Concomitant]
     Dosage: 27JUL11-27JUL11,28JUL11-29JUL11;6.6MG
     Route: 042
     Dates: start: 20110727, end: 20110729

REACTIONS (8)
  - RESPIRATORY ARREST [None]
  - FLANK PAIN [None]
  - INSOMNIA [None]
  - RENAL IMPAIRMENT [None]
  - CARDIAC ARREST [None]
  - BONE MARROW FAILURE [None]
  - NAUSEA [None]
  - DIARRHOEA [None]
